FAERS Safety Report 8347878-7 (Version None)
Quarter: 2012Q2

REPORT INFORMATION
  Report Type: 
  Country: None (occurrence: None)
  Receive Date: 20120509
  Receipt Date: 20120426
  Transmission Date: 20120825
  Serious: Yes (Hospitalization)
  Sender: FDA-Public Use
  Company Number: JP-ELI_LILLY_AND_COMPANY-JP201204002174

PATIENT
  Sex: Female
  Weight: 39 kg

DRUGS (9)
  1. LOXONIN [Concomitant]
     Indication: BACK PAIN
     Dosage: 60 MG, TID
     Route: 048
     Dates: start: 20120216
  2. REBAMIPIDE [Concomitant]
     Dosage: 100 MG, TID
     Route: 048
     Dates: start: 20120216
  3. URSO 250 [Concomitant]
     Dosage: 100 MG, TID
     Route: 048
     Dates: start: 20110430
  4. FORTEO [Suspect]
     Dosage: UNK
     Route: 058
     Dates: start: 20120222, end: 20120301
  5. VOLTAREN                                /SCH/ [Concomitant]
     Indication: BACK PAIN
     Dosage: UNK UNK, PRN
     Route: 054
  6. LASIX [Concomitant]
     Dosage: 20 MG, QD
     Route: 048
     Dates: start: 20110430
  7. LAC-B [Concomitant]
     Dosage: 1 G, TID
     Route: 048
     Dates: start: 20110430
  8. FAMOTIDINE [Concomitant]
     Dosage: 20 MG, QD
     Route: 048
     Dates: start: 20110818
  9. MAGNESIUM SULFATE [Concomitant]
     Dosage: 200 MG, TID
     Route: 048
     Dates: start: 20110430

REACTIONS (3)
  - BACK PAIN [None]
  - GASTRODUODENAL ULCER [None]
  - EXPIRED DRUG ADMINISTERED [None]
